FAERS Safety Report 6329237-1 (Version None)
Quarter: 2009Q3

REPORT INFORMATION
  Report Type: 
  Country: None (occurrence: None)
  Receive Date: 20090826
  Receipt Date: 20090813
  Transmission Date: 20100115
  Serious: Yes (Other)
  Sender: FDA-Public Use
  Company Number: US-PFIZER INC-2009257164

PATIENT
  Sex: Male
  Weight: 102.4 kg

DRUGS (15)
  1. CHANTIX [Suspect]
     Dosage: FREQUENCY: 2X/DAY, EVERYDAY;
     Route: 048
     Dates: start: 20080101, end: 20090801
  2. BENTYL [Concomitant]
     Indication: IRRITABLE BOWEL SYNDROME
  3. PRILOSEC [Concomitant]
  4. PRAZOSIN [Concomitant]
  5. ACYCLOVIR [Concomitant]
  6. NEURONTIN [Concomitant]
  7. PROPRANOLOL [Concomitant]
  8. DETROL LA [Concomitant]
  9. KLONOPIN [Concomitant]
  10. WELLBUTRIN XL [Concomitant]
  11. RESTORIL [Concomitant]
     Indication: SLEEP DISORDER
     Dosage: 45 MG, UNK
  12. PALIPERIDONE [Concomitant]
  13. HYDROXYZINE [Concomitant]
  14. ADDERALL 10 [Concomitant]
  15. CITALOPRAM [Concomitant]

REACTIONS (6)
  - AGGRESSION [None]
  - DEPRESSION [None]
  - HOMICIDAL IDEATION [None]
  - MOOD SWINGS [None]
  - POLLAKIURIA [None]
  - SUICIDAL IDEATION [None]
